FAERS Safety Report 24430903 (Version 1)
Quarter: 2024Q4

REPORT INFORMATION
  Report Type: Other
  Country: US (occurrence: US)
  Receive Date: 20241014
  Receipt Date: 20241014
  Transmission Date: 20250114
  Serious: Yes (Hospitalization, Other)
  Sender: DEXCEL
  Company Number: US-DEXPHARM-2024-3930

PATIENT
  Age: 64 Year
  Sex: Male

DRUGS (15)
  1. PANTOPRAZOLE [Interacting]
     Active Substance: PANTOPRAZOLE
     Indication: Hepatitis C
  2. SOFOSBUVIR\VELPATASVIR [Interacting]
     Active Substance: SOFOSBUVIR\VELPATASVIR
     Indication: Hepatitis C
     Dosage: SOFOSBUVIR 400 MG/VELPATASVIR 100 MG ONCE DAILY FOR 24 WEEKS
  3. FUROSEMIDE [Interacting]
     Active Substance: FUROSEMIDE
     Dosage: 20 MG DAILY
  4. POTASSIUM CHLORIDE [Interacting]
     Active Substance: POTASSIUM CHLORIDE
     Dosage: 10 MEQ DAILY
  5. BUPROPION [Interacting]
     Active Substance: BUPROPION
     Dosage: 300 MG DAILY
  6. TESTOSTERONE [Interacting]
     Active Substance: TESTOSTERONE
     Dosage: 200 MG/ML INTRAMUSCULAR INJECTION EVERY TWO WEEKS
  7. ACYCLOVIR [Interacting]
     Active Substance: ACYCLOVIR
     Dosage: 200 MG DAILY
  8. FERROUS SULFATE [Interacting]
     Active Substance: FERROUS SULFATE
     Dosage: 324 MG DAILY
  9. DOCUSATE [Interacting]
     Active Substance: DOCUSATE
     Dosage: 240 MG DAILY
  10. CHOLECALCIFEROL [Interacting]
     Active Substance: CHOLECALCIFEROL
     Dosage: 2000 UNITS DAILY
  11. SILDENAFIL [Interacting]
     Active Substance: SILDENAFIL
     Dosage: 100 MG ONCE WEEKLY AS NEEDED
  12. GABAPENTIN [Interacting]
     Active Substance: GABAPENTIN
     Dosage: 600 MG TWICE DAILY
  13. ALBUTEROL\IPRATROPIUM [Interacting]
     Active Substance: ALBUTEROL\IPRATROPIUM
     Dosage: ALBUTEROL/IPRATROPIUM INHALER
  14. ALBUTEROL [Interacting]
     Active Substance: ALBUTEROL
     Dosage: ALBUTEROL INHALER
  15. BUPRENORPHINE\NALOXONE [Interacting]
     Active Substance: BUPRENORPHINE\NALOXONE
     Indication: Drug dependence
     Dosage: BUPRENORPHINE 8 MG/NALOXONE 2 MG SUBLINGUALLY TWICE DAILY

REACTIONS (2)
  - Drug interaction [Unknown]
  - Mental status changes [Unknown]
